FAERS Safety Report 10235073 (Version 2)
Quarter: 2014Q3

REPORT INFORMATION
  Report Type: Report from Study
  Country: US (occurrence: US)
  Receive Date: 20140613
  Receipt Date: 20140711
  Transmission Date: 20150326
  Serious: Yes (Death)
  Sender: FDA-Public Use
  Company Number: PHEH2014US011795

PATIENT
  Sex: Male

DRUGS (1)
  1. EXJADE [Suspect]
     Active Substance: DEFERASIROX
     Indication: MYELOID LEUKAEMIA
     Dosage: 3 DF, QD (1500 MG DAILY)
     Route: 048
     Dates: start: 20140307

REACTIONS (2)
  - Myeloid leukaemia [Fatal]
  - Malignant neoplasm progression [Fatal]
